FAERS Safety Report 24392503 (Version 1)
Quarter: 2024Q4

REPORT INFORMATION
  Report Type: Report from Study
  Country: GR (occurrence: GR)
  Receive Date: 20241003
  Receipt Date: 20241003
  Transmission Date: 20250114
  Serious: Yes (Hospitalization, Other)
  Sender: TAKEDA
  Company Number: GR-TAKEDA-2024TUS096978

PATIENT
  Age: 67 Year
  Sex: Female

DRUGS (2)
  1. HUMAN IMMUNOGLOBULIN G\HYALURONIDASE RECOMBINANT HUMAN [Suspect]
     Active Substance: HUMAN IMMUNOGLOBULIN G\HYALURONIDASE (HUMAN RECOMBINANT)
     Indication: Immunodeficiency
     Dosage: 300 MILLILITER, MONTHLY
     Route: 050
     Dates: start: 20240322
  2. CORTISONE [Suspect]
     Active Substance: CORTISONE
     Indication: Post-acute COVID-19 syndrome
     Dosage: UNK
     Route: 042

REACTIONS (9)
  - Post-acute COVID-19 syndrome [Unknown]
  - Hip fracture [Unknown]
  - Fall [Unknown]
  - Pelvic bone injury [Unknown]
  - Inappropriate schedule of product administration [Unknown]
  - Injection site bruising [Unknown]
  - Bone disorder [Unknown]
  - Muscular weakness [Unknown]
  - Injection site pain [Recovered/Resolved]
